FAERS Safety Report 4993856-5 (Version None)
Quarter: 2006Q2

REPORT INFORMATION
  Report Type: 
  Country: None (occurrence: None)
  Receive Date: 20060503
  Receipt Date: 20050420
  Transmission Date: 20061013
  Serious: Yes (Death)
  Sender: FDA-Public Use
  Company Number: 13927

PATIENT
  Age: 46 Year
  Sex: Male

DRUGS (3)
  1. DEXAMETHASONE [Suspect]
     Indication: MULTIPLE MYELOMA
     Dosage: 40 MG PER_CYCLE PO
     Route: 048
     Dates: start: 20040115
  2. DOXORUBICIN HCL [Suspect]
     Indication: MULTIPLE MYELOMA
     Dosage: 9 MG/M2 PER_CYCLE IV
     Route: 042
     Dates: start: 20040115
  3. VINCRISTINE [Suspect]
     Indication: MULTIPLE MYELOMA
     Dosage: 0.4 MG/M2 PER_CYCLE IV
     Route: 042
     Dates: start: 20040115

REACTIONS (14)
  - ABDOMINAL PAIN [None]
  - ALANINE AMINOTRANSFERASE INCREASED [None]
  - ASCITES [None]
  - BLOOD ALKALINE PHOSPHATASE INCREASED [None]
  - BLOOD BILIRUBIN INCREASED [None]
  - GAMMA-GLUTAMYLTRANSFERASE INCREASED [None]
  - GENERAL PHYSICAL HEALTH DETERIORATION [None]
  - HAEMODIALYSIS [None]
  - HEPATOMEGALY [None]
  - LIGHT CHAIN DISEASE [None]
  - LIVER DISORDER [None]
  - MULTI-ORGAN FAILURE [None]
  - RENAL IMPAIRMENT [None]
  - SPLENOMEGALY [None]
